FAERS Safety Report 13493236 (Version 1)
Quarter: 2017Q2

REPORT INFORMATION
  Report Type: Spontaneous
  Country: US (occurrence: US)
  Receive Date: 20170427
  Receipt Date: 20170427
  Transmission Date: 20170830
  Serious: Yes (Other)
  Sender: FDA-Public Use
  Company Number: US-APOTEX-2017AP010830

PATIENT
  Age: 44 Year
  Sex: Male

DRUGS (4)
  1. LAMOTRIGINE. [Suspect]
     Active Substance: LAMOTRIGINE
     Indication: EPILEPSY
     Dosage: 600 MG PER DAY BEFORE CLINICAL TOXICITY
     Route: 065
  2. GABAPENTIN. [Concomitant]
     Active Substance: GABAPENTIN
     Indication: EPILEPSY
     Route: 065
  3. ZONISAMIDE. [Concomitant]
     Active Substance: ZONISAMIDE
     Indication: EPILEPSY
     Route: 065
  4. LAMOTRIGINE. [Suspect]
     Active Substance: LAMOTRIGINE
     Dosage: 700 MG, PER DAY WITH CLINICAL TOXICITY
     Route: 065

REACTIONS (7)
  - Dizziness [Unknown]
  - Nystagmus [Unknown]
  - Balance disorder [Unknown]
  - Diplopia [Unknown]
  - Ataxia [Unknown]
  - Toxicity to various agents [Unknown]
  - Vision blurred [Unknown]
